FAERS Safety Report 15134591 (Version 2)
Quarter: 2018Q3

REPORT INFORMATION
  Report Type: Report from Study
  Country: ID (occurrence: ID)
  Receive Date: 20180712
  Receipt Date: 20180904
  Transmission Date: 20181010
  Serious: Yes (Death, Life-Threatening, Hospitalization, Other)
  Sender: FDA-Public Use
  Company Number: ID-BAYER-2018-125980

PATIENT
  Age: 63 Year
  Sex: Male

DRUGS (6)
  1. NEXAVAR [Suspect]
     Active Substance: SORAFENIB
     Indication: HEPATOCELLULAR CARCINOMA
     Dosage: 400 MG DAILY
     Route: 048
     Dates: start: 201804, end: 20180614
  2. TRAMADOL. [Concomitant]
     Active Substance: TRAMADOL
     Indication: PAIN
     Dosage: UNK
  3. DUROGESIC [Concomitant]
     Active Substance: FENTANYL
     Indication: PAIN
     Dosage: UNK
  4. MEGESTROL ACETATE. [Concomitant]
     Active Substance: MEGESTROL ACETATE
     Indication: CACHEXIA
     Dosage: UNK, 2 X 1 TAB
     Dates: start: 20180605
  5. ULTRACET [Concomitant]
     Active Substance: ACETAMINOPHEN\TRAMADOL HYDROCHLORIDE
     Indication: PAIN
     Dosage: UNK
  6. MEGESTROL ACETATE. [Suspect]
     Active Substance: MEGESTROL ACETATE

REACTIONS (8)
  - Testicular oedema [Fatal]
  - Oedema peripheral [Fatal]
  - Nausea [Fatal]
  - Eating disorder [Fatal]
  - Mouth ulceration [Recovered/Resolved]
  - Pleural effusion [Fatal]
  - Abdominal pain upper [Fatal]
  - Dyspnoea [Fatal]

NARRATIVE: CASE EVENT DATE: 20180615
